FAERS Safety Report 19198162 (Version 1)
Quarter: 2021Q2

REPORT INFORMATION
  Report Type: Report from Study
  Country: DE (occurrence: DE)
  Receive Date: 20210430
  Receipt Date: 20210430
  Transmission Date: 20210717
  Serious: Yes (Death, Hospitalization)
  Sender: FDA-Public Use
  Company Number: DE-BIOGEN-2021BI01005702

PATIENT
  Sex: Female

DRUGS (1)
  1. PLEGRIDY [Suspect]
     Active Substance: PEGINTERFERON BETA-1A
     Indication: MULTIPLE SCLEROSIS
     Route: 058
     Dates: start: 20160812, end: 2021

REACTIONS (4)
  - Death [Fatal]
  - Hypertension [Unknown]
  - Myocardial infarction [Unknown]
  - Cough [Unknown]

NARRATIVE: CASE EVENT DATE: 2021
